FAERS Safety Report 5985601-1 (Version None)
Quarter: 2008Q4

REPORT INFORMATION
  Report Type: 
  Country: None (occurrence: None)
  Receive Date: 20081208
  Receipt Date: 20080326
  Transmission Date: 20090506
  Serious: No
  Sender: FDA-Public Use
  Company Number: US-AMGEN-KDL271313

PATIENT
  Sex: Female

DRUGS (3)
  1. ENBREL [Suspect]
     Indication: RHEUMATOID ARTHRITIS
     Route: 058
     Dates: start: 20080121
  2. METHOTREXATE [Concomitant]
     Route: 048
     Dates: start: 20050101
  3. HYDROXYCHLOROQUINE SULFATE [Concomitant]
     Route: 048
     Dates: start: 20050101

REACTIONS (10)
  - BACK PAIN [None]
  - HERPES ZOSTER [None]
  - HYPOAESTHESIA [None]
  - INJECTION SITE PRURITUS [None]
  - INJECTION SITE RASH [None]
  - NASAL CONGESTION [None]
  - NASOPHARYNGITIS [None]
  - PRURITUS [None]
  - RASH PUSTULAR [None]
  - SNEEZING [None]
